FAERS Safety Report 19825959 (Version 1)
Quarter: 2021Q3

REPORT INFORMATION
  Report Type: Spontaneous
  Country: US (occurrence: US)
  Receive Date: 20210914
  Receipt Date: 20210914
  Transmission Date: 20211014
  Serious: Yes (Life-Threatening, Hospitalization)
  Sender: FDA-Public Use
  Company Number: US-STRIDES ARCOLAB LIMITED-2020SP010568

PATIENT
  Age: 67 Year
  Sex: Male

DRUGS (5)
  1. APIXABAN [Concomitant]
     Active Substance: APIXABAN
     Indication: ATRIAL FIBRILLATION
     Dosage: UNK
     Route: 065
  2. TACROLIMUS. [Suspect]
     Active Substance: TACROLIMUS
     Indication: LIVER TRANSPLANT
     Dosage: UNK
     Route: 065
  3. PREDNISOLONE. [Suspect]
     Active Substance: PREDNISOLONE
     Indication: LIVER TRANSPLANT
     Dosage: 30 MILLIGRAM, BID
     Route: 048
  4. CYCLOSPORINE. [Suspect]
     Active Substance: CYCLOSPORINE
     Indication: LIVER TRANSPLANT
     Dosage: UNK
     Route: 065
  5. EVEROLIMUS. [Suspect]
     Active Substance: EVEROLIMUS
     Indication: LIVER TRANSPLANT
     Dosage: 1 MILLIGRAM, BID BY MOUTH
     Route: 048

REACTIONS (16)
  - Thrombocytopenia [Recovered/Resolved]
  - Dilatation ventricular [Unknown]
  - Oedema peripheral [Unknown]
  - Peripheral coldness [Unknown]
  - Foot deformity [Unknown]
  - Ecchymosis [Unknown]
  - Respiratory failure [Unknown]
  - Emotional distress [Unknown]
  - Cytomegalovirus infection [Unknown]
  - Skin ulcer [Recovered/Resolved]
  - Pneumonia pseudomonal [Unknown]
  - Pulmonary embolism [Unknown]
  - Thrombosis [Unknown]
  - Proteinuria [Recovered/Resolved]
  - Skin necrosis [Unknown]
  - Thrombotic microangiopathy [Unknown]
